FAERS Safety Report 11000488 (Version 1)
Quarter: 2015Q2

REPORT INFORMATION
  Report Type: Spontaneous
  Country: US (occurrence: US)
  Receive Date: 20150408
  Receipt Date: 20150408
  Transmission Date: 20150821
  Serious: No
  Sender: FDA-Public Use
  Company Number: US-SA-2014SA097409

PATIENT

DRUGS (4)
  1. EXCEDRIN [Concomitant]
     Active Substance: ACETAMINOPHEN\ASPIRIN\CAFFEINE
     Dosage: 1 EXCEDRIN
     Route: 065
  2. ALLEGRA [Suspect]
     Active Substance: FEXOFENADINE HYDROCHLORIDE
     Route: 048
  3. MOTRIN [Concomitant]
     Active Substance: IBUPROFEN
     Dosage: 8 MOTRIN
     Route: 065
  4. TYLENOL [Concomitant]
     Active Substance: ACETAMINOPHEN
     Dosage: 3 TYLENOL
     Route: 065

REACTIONS (2)
  - Feeling abnormal [Unknown]
  - Overdose [Unknown]
